FAERS Safety Report 12750352 (Version 1)
Quarter: 2016Q3

REPORT INFORMATION
  Report Type: Spontaneous
  Country: DE (occurrence: DE)
  Receive Date: 20160916
  Receipt Date: 20160916
  Transmission Date: 20161109
  Serious: Yes (Hospitalization, Other)
  Sender: FDA-Public Use
  Company Number: DE-JNJFOC-20160911626

PATIENT
  Age: 59 Year
  Sex: Male

DRUGS (1)
  1. INFLIXIMAB, RECOMBINANT [Suspect]
     Active Substance: INFLIXIMAB
     Indication: COLITIS ULCERATIVE
     Route: 042

REACTIONS (5)
  - Pyrexia [Unknown]
  - Non-alcoholic steatohepatitis [Unknown]
  - Colitis ulcerative [Unknown]
  - Metabolic syndrome [Unknown]
  - Contraindication to vaccination [Unknown]
